FAERS Safety Report 5732951-X (Version None)
Quarter: 2008Q2

REPORT INFORMATION
  Report Type: 
  Country: None (occurrence: None)
  Receive Date: 20080507
  Receipt Date: 20080507
  Transmission Date: 20081010
  Serious: Yes (Other)
  Sender: FDA-Public Use
  Company Number: None

PATIENT
  Age: 63 Year
  Sex: Male
  Weight: 74.8435 kg

DRUGS (1)
  1. DIGITEK  .125  ACTAVIS/MYLAN [Suspect]
     Indication: CARDIAC DISORDER
     Dosage: .125 ONE TAB DAILY PO
     Route: 048
     Dates: start: 20080327, end: 20080506

REACTIONS (4)
  - DIZZINESS [None]
  - LETHARGY [None]
  - NAUSEA [None]
  - PHARMACEUTICAL PRODUCT COMPLAINT [None]
